FAERS Safety Report 5630256-9 (Version None)
Quarter: 2008Q1

REPORT INFORMATION
  Report Type: 
  Country: None (occurrence: None)
  Receive Date: 20080213
  Receipt Date: 20080204
  Transmission Date: 20080703
  Serious: Yes (Death)
  Sender: FDA-Public Use
  Company Number: 2008-01073

PATIENT
  Age: 78 Year
  Sex: Male

DRUGS (2)
  1. FUROSEMIDE                        (FUROSEMIDE) TABLET, 20MG [Suspect]
  2. IBUPROFEN [Suspect]

REACTIONS (1)
  - DEATH [None]
